FAERS Safety Report 7142413-3 (Version None)
Quarter: 2010Q4

REPORT INFORMATION
  Report Type: 
  Country: None (occurrence: None)
  Receive Date: 20101117
  Receipt Date: 20100810
  Transmission Date: 20110411
  Serious: No
  Sender: FDA-Public Use
  Company Number: WAES 1006USA00407

PATIENT
  Age: 53 Year
  Sex: Female

DRUGS (5)
  1. ISENTRESS [Suspect]
     Indication: HIV INFECTION
     Dosage: 400 MG/BID/PO
     Route: 048
  2. BONIVA [Concomitant]
  3. NORVIR [Concomitant]
  4. TRUVADA [Concomitant]
  5. VIREAD [Concomitant]

REACTIONS (1)
  - DERMATITIS [None]
